FAERS Safety Report 25778299 (Version 1)
Quarter: 2025Q3

REPORT INFORMATION
  Report Type: Spontaneous
  Country: EU (occurrence: EU)
  Receive Date: 20250909
  Receipt Date: 20250909
  Transmission Date: 20251020
  Serious: Yes (Hospitalization, Other)
  Sender: MICRO LABS
  Company Number: EU-862174955-ML2025-04468

PATIENT
  Age: 84 Year
  Sex: Male

DRUGS (10)
  1. AMOXICILLIN [Suspect]
     Active Substance: AMOXICILLIN
     Indication: Helicobacter infection
     Dosage: ONE TABLET IN THE MORNING, ONE TABLET IN THE EVENING
     Route: 048
     Dates: start: 20250815, end: 20250822
  2. CLARITHROMYCIN [Suspect]
     Active Substance: CLARITHROMYCIN
     Indication: Helicobacter infection
     Dosage: ONE TABLET IN THE MORNING, ONE TABLET IN THE EVENING
     Route: 048
     Dates: start: 20250815, end: 20250822
  3. IRBESARTAN [Concomitant]
     Active Substance: IRBESARTAN
     Indication: Product used for unknown indication
  4. PANTOPRAZOLE SODIUM [Concomitant]
     Active Substance: PANTOPRAZOLE SODIUM
     Indication: Product used for unknown indication
  5. NEBIVOLOL [Concomitant]
     Active Substance: NEBIVOLOL
     Indication: Product used for unknown indication
  6. Dutasterid/Tamsulosin 0,5 mg/0,4 mg [Concomitant]
     Indication: Product used for unknown indication
  7. EZETIMIBE\SIMVASTATIN [Concomitant]
     Active Substance: EZETIMIBE\SIMVASTATIN
     Indication: Product used for unknown indication
  8. Entocort 3 mg [Concomitant]
     Indication: Product used for unknown indication
  9. ASPIRIN [Concomitant]
     Active Substance: ASPIRIN
     Indication: Product used for unknown indication
  10. CORTISONE [Concomitant]
     Active Substance: CORTISONE
     Indication: Product used for unknown indication

REACTIONS (5)
  - Gait disturbance [Not Recovered/Not Resolved]
  - Oedema peripheral [Not Recovered/Not Resolved]
  - Blood glucose fluctuation [Not Recovered/Not Resolved]
  - Hypokinesia [Not Recovered/Not Resolved]
  - Renal impairment [Not Recovered/Not Resolved]

NARRATIVE: CASE EVENT DATE: 20250801
